FAERS Safety Report 6860094-0 (Version None)
Quarter: 2010Q3

REPORT INFORMATION
  Report Type: 
  Country: None (occurrence: None)
  Receive Date: 20100720
  Receipt Date: 20100709
  Transmission Date: 20110219
  Serious: Yes (Other)
  Sender: FDA-Public Use
  Company Number: US-PFIZER INC-2010085972

PATIENT
  Age: 43 Year
  Sex: Female

DRUGS (1)
  1. ZOLOFT [Suspect]
     Dosage: 150 MG, UNK

REACTIONS (3)
  - FEELING ABNORMAL [None]
  - SUICIDAL IDEATION [None]
  - WEIGHT INCREASED [None]
